FAERS Safety Report 6335406-7 (Version None)
Quarter: 2009Q3

REPORT INFORMATION
  Report Type: 
  Country: None (occurrence: None)
  Receive Date: 20090831
  Receipt Date: 20090827
  Transmission Date: 20100115
  Serious: Yes (Death, Hospitalization)
  Sender: FDA-Public Use
  Company Number: PHEH2009US06947

PATIENT
  Sex: Female
  Weight: 58.957 kg

DRUGS (12)
  1. GLEEVEC [Suspect]
     Indication: CHRONIC MYELOID LEUKAEMIA
     Dosage: 200 MG, QD
     Route: 048
     Dates: start: 20070101
  2. ZAROXOLYN [Concomitant]
  3. ALDACTONE [Concomitant]
  4. CYMBALTA [Concomitant]
  5. COUMADIN [Concomitant]
  6. LISINOPRIL [Concomitant]
  7. ASPIRIN [Concomitant]
  8. NORVASC [Concomitant]
  9. GLYBURIDE [Concomitant]
  10. COREG [Concomitant]
  11. BUMEX [Concomitant]
  12. ADVAIR HFA [Concomitant]

REACTIONS (6)
  - CARDIAC FAILURE CONGESTIVE [None]
  - CHRONIC MYELOID LEUKAEMIA [None]
  - CONCOMITANT DISEASE AGGRAVATED [None]
  - MALIGNANT NEOPLASM PROGRESSION [None]
  - PNEUMONIA [None]
  - RENAL FAILURE CHRONIC [None]
